FAERS Safety Report 19012611 (Version 2)
Quarter: 2021Q1

REPORT INFORMATION
  Report Type: Spontaneous
  Country: BR (occurrence: BR)
  Receive Date: 20210316
  Receipt Date: 20210319
  Transmission Date: 20210420
  Serious: Yes (Death, Other)
  Sender: FDA-Public Use
  Company Number: BR-PFIZER INC-2021239896

PATIENT
  Age: 72 Year
  Sex: Male

DRUGS (1)
  1. SUTENT [Suspect]
     Active Substance: SUNITINIB MALATE
     Indication: RENAL CANCER
     Dosage: 50 MG, 1X/DAY
     Route: 048
     Dates: start: 20210201, end: 20210210

REACTIONS (15)
  - Gait disturbance [Unknown]
  - Death [Fatal]
  - Erythema [Unknown]
  - Limb discomfort [Unknown]
  - Pancreatic enzymes abnormal [Recovered/Resolved]
  - Vein disorder [Unknown]
  - Urinary retention [Unknown]
  - Eating disorder [Not Recovered/Not Resolved]
  - Muscular weakness [Unknown]
  - Coagulopathy [Unknown]
  - Abdominal pain [Unknown]
  - Thrombosis [Unknown]
  - Speech disorder [Unknown]
  - Dyspnoea [Not Recovered/Not Resolved]
  - Fluid intake reduced [Not Recovered/Not Resolved]

NARRATIVE: CASE EVENT DATE: 202102
